FAERS Safety Report 16835141 (Version 3)
Quarter: 2020Q2

REPORT INFORMATION
  Report Type: Spontaneous
  Country: US (occurrence: US)
  Receive Date: 20190920
  Receipt Date: 20200629
  Transmission Date: 20200713
  Serious: No
  Sender: FDA-Public Use
  Company Number: US-SA-2019SA258330

PATIENT

DRUGS (20)
  1. DUPIXENT [Suspect]
     Active Substance: DUPILUMAB
     Indication: ECZEMA
  2. DOXEPIN [Concomitant]
     Active Substance: DOXEPIN
  3. ESTRADIOL. [Concomitant]
     Active Substance: ESTRADIOL
  4. DUPIXENT [Suspect]
     Active Substance: DUPILUMAB
     Indication: DERMATITIS
     Dosage: 300 MG, QOW
     Route: 058
     Dates: start: 20180822
  5. CEFUROXIME. [Concomitant]
     Active Substance: CEFUROXIME
  6. LEVOCETIRIZINE [Concomitant]
     Active Substance: LEVOCETIRIZINE
  7. METHYLPHENIDAT [Concomitant]
     Active Substance: METHYLPHENIDATE
  8. BETAMETH DIPROPIONATE [Concomitant]
  9. MUPIROCIN. [Concomitant]
     Active Substance: MUPIROCIN
  10. PREDNISONE. [Concomitant]
     Active Substance: PREDNISONE
  11. NAPROXEN. [Concomitant]
     Active Substance: NAPROXEN
  12. CEPHALEXINE [Concomitant]
     Active Substance: CEPHALEXIN
  13. LEVOTHYROXINE. [Concomitant]
     Active Substance: LEVOTHYROXINE
  14. ECONAZOLE. [Concomitant]
     Active Substance: ECONAZOLE NITRATE
  15. TRIAMCINOLON [TRIAMCINOLONE] [Concomitant]
     Active Substance: TRIAMCINOLONE
  16. AUGMENTED BETAMETHASONE DIPROPIONATE [Concomitant]
  17. ERYTHROMYCIN. [Concomitant]
     Active Substance: ERYTHROMYCIN
  18. PAROXETINE HYDROCHLORIDE. [Concomitant]
     Active Substance: PAROXETINE HYDROCHLORIDE
  19. BUPROPION. [Concomitant]
     Active Substance: BUPROPION
  20. SULFAMETHOXAZOLE AND TRIMETHOPRIM [Concomitant]
     Active Substance: SULFAMETHOXAZOLE\TRIMETHOPRIM

REACTIONS (4)
  - Dry eye [Not Recovered/Not Resolved]
  - Skin irritation [Not Recovered/Not Resolved]
  - Injection site bruising [Not Recovered/Not Resolved]
  - Umbilical erythema [Not Recovered/Not Resolved]

NARRATIVE: CASE EVENT DATE: 2019
